FAERS Safety Report 24390518 (Version 2)
Quarter: 2024Q4

REPORT INFORMATION
  Report Type: Spontaneous
  Country: US (occurrence: US)
  Receive Date: 20241003
  Receipt Date: 20241008
  Transmission Date: 20250114
  Serious: No
  Sender: BOEHRINGER INGELHEIM
  Company Number: US-Komodo Health-a23aa000003ULTVAA4

PATIENT
  Age: 84 Year
  Sex: Male

DRUGS (2)
  1. JARDIANCE [Suspect]
     Active Substance: EMPAGLIFLOZIN
     Indication: Type 2 diabetes mellitus
     Dosage: DAILY DOSE: 25 MILLIGRAM(S)
     Dates: start: 202409
  2. JARDIANCE [Suspect]
     Active Substance: EMPAGLIFLOZIN
     Dosage: DAILY DOSE: 10 MILLIGRAM(S)
     Dates: start: 202409

REACTIONS (3)
  - Pruritus genital [Not Recovered/Not Resolved]
  - Penile swelling [Not Recovered/Not Resolved]
  - Penile erythema [Not Recovered/Not Resolved]

NARRATIVE: CASE EVENT DATE: 20241001
